FAERS Safety Report 5803544-0 (Version None)
Quarter: 2008Q2

REPORT INFORMATION
  Report Type: 
  Country: None (occurrence: None)
  Receive Date: 20080630
  Receipt Date: 20080221
  Transmission Date: 20081010
  Serious: No
  Sender: FDA-Public Use
  Company Number: PHEH2008US02081

PATIENT
  Age: 6 Year
  Sex: Female
  Weight: 25.3 kg

DRUGS (2)
  1. EXJADE [Suspect]
     Indication: IRON OVERLOAD
     Dosage: 500 MG, QD, ORAL; 3 DF
     Route: 048
     Dates: start: 20060217
  2. EXJADE [Suspect]
     Indication: IRON OVERLOAD
     Dosage: 500 MG, QD, ORAL; 3 DF
     Route: 048
     Dates: start: 20080215

REACTIONS (3)
  - DIARRHOEA [None]
  - OVERDOSE [None]
  - RASH [None]
